FAERS Safety Report 5967626-5 (Version None)
Quarter: 2008Q4

REPORT INFORMATION
  Report Type: 
  Country: None (occurrence: None)
  Receive Date: 20081126
  Receipt Date: 20081114
  Transmission Date: 20090506
  Serious: Yes (Hospitalization)
  Sender: FDA-Public Use
  Company Number: PHHY2008JP10649

PATIENT
  Sex: Female

DRUGS (14)
  1. SIMULECT [Suspect]
     Indication: RENAL TRANSPLANT
     Dosage: 20 MG, ONCE/SINGLE
     Route: 042
     Dates: start: 20070606, end: 20070606
  2. SIMULECT [Suspect]
     Dosage: 20 MG, ONCE/SINGLE
     Route: 042
     Dates: start: 20070610, end: 20070610
  3. NEORAL [Suspect]
     Indication: RENAL TRANSPLANT
     Dosage: 550 MG, DAILY
     Route: 048
     Dates: start: 20070603
  4. CELLCEPT [Suspect]
     Indication: RENAL TRANSPLANT
     Dosage: 1500 MG, DAILY
     Route: 048
     Dates: start: 20070607
  5. SANDIMMUNE [Concomitant]
     Indication: RENAL TRANSPLANT
     Dosage: 175 MG, ONCE/SINGLE
     Route: 042
     Dates: start: 20070606, end: 20070606
  6. SOLU-MEDROL [Concomitant]
     Indication: RENAL TRANSPLANT
     Dosage: 250 MG, ONCE/SINGLE
     Route: 042
     Dates: start: 20070606, end: 20070606
  7. PREDONINE [Concomitant]
     Indication: RENAL TRANSPLANT
     Dosage: 50 MG, UNK
     Route: 042
     Dates: start: 20070607, end: 20070612
  8. PREDONINE [Concomitant]
     Dosage: 50 MG, UNK
     Route: 048
     Dates: start: 20070613
  9. ASPIRIN [Concomitant]
     Indication: THROMBOSIS PROPHYLAXIS
     Dosage: 100 MG, UNK
     Route: 048
     Dates: start: 20070607
  10. COTRIM [Concomitant]
     Indication: PNEUMOCYSTIS JIROVECI PNEUMONIA
     Dosage: 480 MG, UNK
     Route: 048
     Dates: start: 20070607
  11. CARDENALIN [Concomitant]
     Indication: HYPERTENSION
     Dosage: 2 MG, UNK
     Route: 048
     Dates: start: 20070607
  12. ALDOMET [Concomitant]
     Indication: HYPERTENSION
     Dosage: 500 MG, UNK
     Route: 048
     Dates: start: 20070607, end: 20070629
  13. CINALONG [Concomitant]
     Indication: HYPERTENSION
     Dosage: 10 MG, UNK
     Route: 048
     Dates: start: 20070607
  14. SIMVASTATIN [Concomitant]
     Indication: HYPERLIPIDAEMIA
     Dosage: 5 MG, UNK
     Route: 048
     Dates: start: 20070622

REACTIONS (3)
  - CYTOMEGALOVIRUS INFECTION [None]
  - HYPERCHOLESTEROLAEMIA [None]
  - LOW DENSITY LIPOPROTEIN INCREASED [None]
